FAERS Safety Report 9768135 (Version 1)
Quarter: 2013Q4

REPORT INFORMATION
  Report Type: Spontaneous
  Country: US (occurrence: US)
  Receive Date: 20131217
  Receipt Date: 20131217
  Transmission Date: 20140711
  Serious: No
  Sender: FDA-Public Use
  Company Number: US-BAXTER-2013BAX049300

PATIENT
  Age: 9 Month
  Sex: Male

DRUGS (5)
  1. MILRINONE LACTATE IN 5% DEXTROSE INJECTION [Suspect]
     Indication: PRODUCT USED FOR UNKNOWN INDICATION
     Dates: start: 20131202
  2. MILRINONE LACTATE IN 5% DEXTROSE INJECTION [Suspect]
     Indication: OFF LABEL USE
  3. LASIX [Concomitant]
     Indication: PRODUCT USED FOR UNKNOWN INDICATION
     Route: 065
  4. LASIX [Concomitant]
     Indication: OFF LABEL USE
  5. DIURIL [Concomitant]
     Indication: PRODUCT USED FOR UNKNOWN INDICATION
     Route: 065

REACTIONS (3)
  - Device use error [Unknown]
  - Drug administration error [Unknown]
  - No adverse event [Recovered/Resolved]
